FAERS Safety Report 13061475 (Version 1)
Quarter: 2016Q4

REPORT INFORMATION
  Report Type: Spontaneous
  Country: US (occurrence: US)
  Receive Date: 20161226
  Receipt Date: 20161226
  Transmission Date: 20170207
  Serious: No
  Sender: FDA-Public Use
  Company Number: US-NOVEN PHARMACEUTICALS, INC.-US2015001026

PATIENT
  Age: 61 Year
  Sex: Female

DRUGS (3)
  1. VAGIFEM [Concomitant]
     Active Substance: ESTRADIOL
     Dosage: 20 MG, UNK
  2. MINIVELLE [Suspect]
     Active Substance: ESTRADIOL
     Dosage: 0.1 MG, EVERY 48 HOURS
     Route: 062
  3. MINIVELLE [Suspect]
     Active Substance: ESTRADIOL
     Indication: HORMONE REPLACEMENT THERAPY
     Dosage: 0.1 MG, 2/WK
     Route: 062
     Dates: start: 2013

REACTIONS (4)
  - Inappropriate schedule of drug administration [Unknown]
  - Off label use [Unknown]
  - Hormone level abnormal [Recovered/Resolved]
  - Drug effect decreased [Unknown]

NARRATIVE: CASE EVENT DATE: 2013
